FAERS Safety Report 5257612-5 (Version None)
Quarter: 2007Q1

REPORT INFORMATION
  Report Type: 
  Country: None (occurrence: None)
  Receive Date: 20070307
  Receipt Date: 20070103
  Transmission Date: 20070707
  Serious: No
  Sender: FDA-Public Use
  Company Number: US-GLAXOSMITHKLINE-A0634354A

PATIENT
  Sex: Female

DRUGS (3)
  1. REQUIP [Suspect]
     Indication: RESTLESS LEGS SYNDROME
     Dosage: 1MG AT NIGHT
     Route: 048
  2. LYRICA [Concomitant]
     Indication: RESTLESS LEGS SYNDROME
     Dosage: 75MG THREE TIMES PER DAY
     Route: 048
  3. SLEEP AID [Concomitant]

REACTIONS (1)
  - RESTLESS LEGS SYNDROME [None]
